FAERS Safety Report 23085785 (Version 1)
Quarter: 2023Q4

REPORT INFORMATION
  Report Type: Spontaneous
  Country: US (occurrence: US)
  Receive Date: 20231019
  Receipt Date: 20231019
  Transmission Date: 20240109
  Serious: Yes (Other)
  Sender: FDA-Public Use
  Company Number: US-ABBVIE-5437005

PATIENT
  Age: 87 Year
  Sex: Female
  Weight: 39 kg

DRUGS (1)
  1. REFRESH CLASSIC [Suspect]
     Active Substance: POLYVINYL ALCOHOL\POVIDONE
     Indication: Dry eye
     Dosage: 1 DROP EACH EYE, 3 TO 4 TIMES PER DAY
     Route: 047

REACTIONS (3)
  - Malignant neoplasm of eye [Recovering/Resolving]
  - Multiple use of single-use product [Unknown]
  - Therapeutic product effect incomplete [Unknown]

NARRATIVE: CASE EVENT DATE: 20220701
